FAERS Safety Report 24762171 (Version 1)
Quarter: 2024Q4

REPORT INFORMATION
  Report Type: Report from Study
  Country: US (occurrence: US)
  Receive Date: 20241221
  Receipt Date: 20241221
  Transmission Date: 20250114
  Serious: Yes (Hospitalization, Other)
  Sender: CELLTRION
  Company Number: US-CELLTRION INC.-2023US024996

PATIENT

DRUGS (6)
  1. RITUXIMAB [Suspect]
     Active Substance: RITUXIMAB
     Indication: Follicular lymphoma
     Dosage: TWO CYCLES OF BENDAMUSTINE + RITUXIMAB (BR)
  2. RITUXIMAB [Suspect]
     Active Substance: RITUXIMAB
     Indication: Waldenstrom^s macroglobulinaemia
     Dosage: FIVE WEEKLY INFUSIONS OF SINGLE AGENT RITUXIMAB (R)
  3. RITUXIMAB [Suspect]
     Active Substance: RITUXIMAB
     Dosage: 2 CYCLES OF RVD (RITUXIMAB + BORTEZOMIB + DEXAMETHASONE)
  4. BENDAMUSTINE [Suspect]
     Active Substance: BENDAMUSTINE
     Indication: Follicular lymphoma
     Dosage: TWO CYCLES OF BENDAMUSTINE + RITUXIMAB (BR)
  5. BORTEZOMIB [Suspect]
     Active Substance: BORTEZOMIB
     Indication: Waldenstrom^s macroglobulinaemia
     Dosage: 2 CYCLES OF RVD (RITUXIMAB + BORTEZOMIB + DEXAMETHASONE)
  6. DEXAMETHASONE [Suspect]
     Active Substance: DEXAMETHASONE
     Indication: Waldenstrom^s macroglobulinaemia
     Dosage: 2 CYCLES OF RVD (RITUXIMAB + BORTEZOMIB + DEXAMETHASONE)

REACTIONS (4)
  - Hyperviscosity syndrome [Recovering/Resolving]
  - Pancytopenia [Unknown]
  - Sepsis [Unknown]
  - Drug ineffective for unapproved indication [Unknown]
